FAERS Safety Report 17219748 (Version 5)
Quarter: 2020Q3

REPORT INFORMATION
  Report Type: Report from Study
  Country: MX (occurrence: MX)
  Receive Date: 20191231
  Receipt Date: 20200825
  Transmission Date: 20201102
  Serious: Yes (Other)
  Sender: FDA-Public Use
  Company Number: NVSC2019MX029201

PATIENT
  Sex: Female
  Weight: 69 kg

DRUGS (4)
  1. ELATEC [Concomitant]
     Dosage: 1 DF (1000 OT), QD
     Route: 048
     Dates: start: 202002
  2. LOPRESOR [Suspect]
     Active Substance: METOPROLOL
     Indication: HYPERTENSION
     Dosage: 1 DF, QD (1 ? YEAR AGO)
     Route: 048
  3. CO?DIOVAN [Suspect]
     Active Substance: HYDROCHLOROTHIAZIDE\VALSARTAN
     Indication: HYPERTENSION
     Dosage: 1 DF, QD (14 YEARS AGO) (12.5 MG HYDROCHLORTHIAZIDE, 320 MG VALSARTAN)
     Route: 048
     Dates: start: 2005, end: 20191010
  4. ELATEC [Concomitant]
     Indication: CARDIOVASCULAR DISORDER
     Dosage: 1 DF (1000 OT), QD
     Route: 065
     Dates: start: 201910

REACTIONS (3)
  - Chronic obstructive pulmonary disease [Unknown]
  - Dyspnoea [Recovering/Resolving]
  - Hypertension [Unknown]
